FAERS Safety Report 24118329 (Version 1)
Quarter: 2024Q3

REPORT INFORMATION
  Report Type: Spontaneous
  Country: JP (occurrence: JP)
  Receive Date: 20240722
  Receipt Date: 20240722
  Transmission Date: 20241017
  Serious: Yes (Death, Hospitalization, Other)
  Sender: MERCK
  Company Number: JP-MSD-M2017-10108

PATIENT
  Age: 73 Year
  Sex: Male
  Weight: 57 kg

DRUGS (3)
  1. KEYTRUDA [Suspect]
     Active Substance: PEMBROLIZUMAB
     Indication: Lung squamous cell carcinoma stage III
     Dosage: 200 MILLIGRAM, Q3W
     Route: 041
     Dates: start: 20170428, end: 2020
  2. KEYTRUDA [Suspect]
     Active Substance: PEMBROLIZUMAB
     Indication: PD-L1 positive cancer
     Dosage: 200 MILLIGRAM, Q3W
     Route: 041
     Dates: start: 20201006
  3. ACETAMINOPHEN [Concomitant]
     Active Substance: ACETAMINOPHEN
     Indication: Prophylaxis
     Dosage: 400 MG, TID
     Route: 048
     Dates: start: 20170428, end: 20170502

REACTIONS (3)
  - Malignant neoplasm progression [Fatal]
  - Pyrexia [Recovered/Resolved]
  - Dermatitis psoriasiform [Not Recovered/Not Resolved]

NARRATIVE: CASE EVENT DATE: 20170428
